FAERS Safety Report 8504367 (Version 4)
Quarter: 2013Q4

REPORT INFORMATION
  Report Type: Report from Study
  Country: US (occurrence: US)
  Receive Date: 20120411
  Receipt Date: 20131017
  Transmission Date: 20140711
  Serious: Yes (Death, Hospitalization)
  Sender: FDA-Public Use
  Company Number: US-CELGENEUS-163-50794-12040155

PATIENT
  Age: 77 Year
  Sex: Female
  Weight: 80 kg

DRUGS (9)
  1. VIDAZA [Suspect]
     Indication: ACUTE MYELOID LEUKAEMIA
     Dosage: 75 MILLIGRAM/SQ. METER
     Route: 058
     Dates: start: 20120202, end: 20120210
  2. VIDAZA [Suspect]
     Dosage: 75 MILLIGRAM/SQ. METER
     Route: 058
     Dates: start: 20120302, end: 20120308
  3. GEMTUZUMAB OZOGAMICIN [Suspect]
     Indication: ACUTE MYELOID LEUKAEMIA
     Route: 041
     Dates: start: 20120202, end: 20120213
  4. GEMTUZUMAB OZOGAMICIN [Suspect]
     Dosage: 3 MILLIGRAM/SQ. METER
     Route: 041
     Dates: start: 20120302, end: 20120309
  5. HYDROXYUREA [Concomitant]
     Indication: PRODUCT USED FOR UNKNOWN INDICATION
     Route: 048
     Dates: start: 20120202, end: 2012
  6. HYDROXYUREA [Concomitant]
     Dosage: 3000 MILLIGRAM
     Route: 048
     Dates: start: 20120302
  7. BLOOD TRANSFUSION [Concomitant]
     Indication: FULL BLOOD COUNT DECREASED
     Route: 041
     Dates: start: 20120227, end: 20120227
  8. PROZAC [Concomitant]
     Indication: PRODUCT USED FOR UNKNOWN INDICATION
     Route: 065
     Dates: start: 20120308
  9. CLORPROMAZINE [Concomitant]
     Indication: PRODUCT USED FOR UNKNOWN INDICATION
     Route: 065
     Dates: start: 201203

REACTIONS (6)
  - Multi-organ failure [Fatal]
  - Infusion related reaction [Recovered/Resolved]
  - Troponin I increased [Recovering/Resolving]
  - Alanine aminotransferase increased [Recovered/Resolved]
  - Aspartate aminotransferase increased [Not Recovered/Not Resolved]
  - Blood bilirubin increased [Not Recovered/Not Resolved]
